FAERS Safety Report 19866514 (Version 3)
Quarter: 2021Q4

REPORT INFORMATION
  Report Type: Report from Study
  Country: GB (occurrence: GB)
  Receive Date: 20210921
  Receipt Date: 20211123
  Transmission Date: 20220303
  Serious: Yes (Hospitalization)
  Sender: FDA-Public Use
  Company Number: GB-ROCHE-2899975

PATIENT
  Age: 63 Year
  Sex: Female
  Weight: 66.5 kg

DRUGS (26)
  1. CARBOPLATIN [Suspect]
     Active Substance: CARBOPLATIN
     Indication: Non-small cell lung cancer
     Dosage: 450 MG
     Route: 065
     Dates: start: 20210316
  2. ETOPOSIDE [Suspect]
     Active Substance: ETOPOSIDE
     Dosage: 180 MG
     Route: 065
     Dates: start: 20210316
  3. ETOPOSIDE [Suspect]
     Active Substance: ETOPOSIDE
     Dosage: 700 MG
     Route: 048
     Dates: start: 20210407
  4. ATEZOLIZUMAB [Suspect]
     Active Substance: ATEZOLIZUMAB
     Indication: Non-small cell lung cancer
     Dosage: 1200 MG, MONTHLY
     Route: 041
     Dates: start: 20210316
  5. ATEZOLIZUMAB [Suspect]
     Active Substance: ATEZOLIZUMAB
     Dosage: 1680 MG, EVERY 4 WEEKS
     Route: 041
     Dates: start: 20210720
  6. APIXABAN [Concomitant]
     Active Substance: APIXABAN
     Dosage: UNK, 1X/DAY
  7. BISOPROLOL [Concomitant]
     Active Substance: BISOPROLOL
     Dosage: UNK, 1X/DAY
  8. DIGOXIN [Concomitant]
     Active Substance: DIGOXIN
     Dosage: UNK, 1X/DAY
  9. METFORMIN [Concomitant]
     Active Substance: METFORMIN HYDROCHLORIDE
     Dosage: UNK UNK, 3X/DAY
     Route: 065
     Dates: start: 20210217
  10. ALBUTEROL [Concomitant]
     Active Substance: ALBUTEROL
     Dosage: UNK, AS NEEDED
  11. POLYETHYLENE GLYCOL 3350\POTASSIUM CHLORIDE\SODIUM BICARBONATE\SODIUM [Concomitant]
     Active Substance: POLYETHYLENE GLYCOL 3350\POTASSIUM CHLORIDE\SODIUM BICARBONATE\SODIUM CHLORIDE
     Dosage: UNK, AS NEEDED
  12. FILGRASTIM [Concomitant]
     Active Substance: FILGRASTIM
     Dosage: UNK, 1X/DAY
     Dates: start: 20210418
  13. GLICLAZIDE [Concomitant]
     Active Substance: GLICLAZIDE
     Dosage: UNK, 2X/DAY
     Dates: start: 20210510
  14. FLUDROCORTISONE [Concomitant]
     Active Substance: FLUDROCORTISONE
     Dosage: UNK
     Dates: start: 20210509
  15. LANOLIN\LIGHT MINERAL OIL\PARAFFIN [Concomitant]
     Active Substance: LANOLIN\LIGHT MINERAL OIL\PARAFFIN
     Dosage: UNK, AS NEEDED
     Dates: start: 202106
  16. ACETAMINOPHEN [Concomitant]
     Active Substance: ACETAMINOPHEN
     Dosage: UNK, AS NEEDED
     Dates: start: 202106
  17. AQUEOUS CREAM [Concomitant]
     Dosage: AS NECESSARY
     Dates: start: 202106
  18. PREDNISOLONE [Concomitant]
     Active Substance: PREDNISOLONE
     Dosage: UNK, 1X/DAY
     Dates: start: 20210822
  19. AMOXICILLIN [Concomitant]
     Active Substance: AMOXICILLIN
     Dosage: UNK, 3X/DAY
     Dates: start: 20210812, end: 202108
  20. ACYCLOVIR [Concomitant]
     Active Substance: ACYCLOVIR
     Dosage: UNK, 1X/DAY
  21. FLUCONAZOLE [Concomitant]
     Active Substance: FLUCONAZOLE
     Dosage: UNK, 1X/DAY
     Dates: start: 202108
  22. OMEPRAZOLE [Concomitant]
     Active Substance: OMEPRAZOLE
     Dosage: UNK, 2X/DAY
     Dates: start: 202108
  23. DOCUSATE SODIUM [Concomitant]
     Active Substance: DOCUSATE SODIUM
     Dosage: UNK, 2X/DAY
     Dates: start: 20210825
  24. CLOTRIMAZOLE [Concomitant]
     Active Substance: CLOTRIMAZOLE
     Dosage: UNK, 1X/DAY
  25. HYDROCORTISONE [Concomitant]
     Active Substance: HYDROCORTISONE
     Dosage: UNK, AS NEEDED
     Dates: start: 202106
  26. VITAMIN D3 [Concomitant]
     Active Substance: CHOLECALCIFEROL
     Dosage: UNK, 1X/DAY

REACTIONS (1)
  - Immune-mediated enterocolitis [Recovered/Resolved]

NARRATIVE: CASE EVENT DATE: 20210818
